FAERS Safety Report 22666857 (Version 3)
Quarter: 2023Q4

REPORT INFORMATION
  Report Type: Report from Study
  Country: CA (occurrence: CA)
  Receive Date: 20230704
  Receipt Date: 20231009
  Transmission Date: 20240110
  Serious: Yes (Other)
  Sender: FDA-Public Use
  Company Number: CA-ABBVIE-5312323

PATIENT
  Sex: Female

DRUGS (1)
  1. HUMIRA [Suspect]
     Active Substance: ADALIMUMAB
     Indication: Ankylosing spondylitis
     Dosage: FORM STRENGTH 40MG
     Route: 058
     Dates: start: 20140308

REACTIONS (2)
  - Blindness transient [Recovered/Resolved]
  - Iritis [Unknown]

NARRATIVE: CASE EVENT DATE: 20220101
